FAERS Safety Report 9642527 (Version 6)
Quarter: 2014Q1

REPORT INFORMATION
  Report Type: Report from Study
  Country: JP (occurrence: JP)
  Receive Date: 20131024
  Receipt Date: 20140228
  Transmission Date: 20141002
  Serious: Yes (Other)
  Sender: FDA-Public Use
  Company Number: JP-AMGEN-JPNSP2013074535

PATIENT
  Age: 78 Year
  Sex: Male

DRUGS (3)
  1. DENOSUMAB [Suspect]
     Indication: METASTASES TO BONE
     Dosage: 120 MG, UNK
     Route: 058
     Dates: start: 20121220, end: 20130730
  2. BICALUTAMID [Concomitant]
     Dosage: 80 MG, QD
     Route: 048
     Dates: start: 20121220
  3. GONAX [Concomitant]
     Dosage: 120 MG, QD
     Route: 058
     Dates: start: 20121220

REACTIONS (3)
  - Osteonecrosis of jaw [Recovered/Resolved]
  - Jaw cyst [Recovered/Resolved]
  - Periodontitis [Recovered/Resolved]
